FAERS Safety Report 12399078 (Version 3)
Quarter: 2016Q2

REPORT INFORMATION
  Report Type: Report from Study
  Country: MX (occurrence: MX)
  Receive Date: 20160524
  Receipt Date: 20160623
  Transmission Date: 20160815
  Serious: Yes (Other)
  Sender: FDA-Public Use
  Company Number: PHHY2016MX071307

PATIENT
  Sex: Male

DRUGS (2)
  1. EXFORGE HCT [Suspect]
     Active Substance: AMLODIPINE BESYLATE\HYDROCHLOROTHIAZIDE\VALSARTAN
     Indication: HYPERTENSION
     Dosage: 2 DF (10 MG, AS REPORTED), QD (ONE AT NIGHT AND ONE IN THE MORNING)
     Route: 048
     Dates: start: 201603
  2. EXFORGE HCT [Suspect]
     Active Substance: AMLODIPINE BESYLATE\HYDROCHLOROTHIAZIDE\VALSARTAN
     Dosage: 1 DF, QD (IN THE MORNING) (FROM 16 DAYS AGO)
     Route: 048

REACTIONS (14)
  - Vomiting [Unknown]
  - Depressed mood [Unknown]
  - Hypokinesia [Recovering/Resolving]
  - Asthenia [Recovering/Resolving]
  - Memory impairment [Unknown]
  - Cognitive disorder [Recovering/Resolving]
  - Decreased appetite [Recovering/Resolving]
  - Amnesia [Recovering/Resolving]
  - Anger [Recovering/Resolving]
  - Speech disorder [Unknown]
  - Facial paresis [Recovering/Resolving]
  - Senile dementia [Unknown]
  - Blood pressure decreased [Recovered/Resolved]
  - Wrong technique in product usage process [Unknown]
